FAERS Safety Report 5862451-8 (Version None)
Quarter: 2008Q3

REPORT INFORMATION
  Report Type: 
  Country: None (occurrence: None)
  Receive Date: 20080827
  Receipt Date: 20080827
  Transmission Date: 20090109
  Serious: Yes (Hospitalization)
  Sender: FDA-Public Use
  Company Number: None

PATIENT
  Age: 86 Year
  Sex: Male

DRUGS (1)
  1. METOPROLOL TARTRATE [Suspect]
     Indication: HYPERTENSION
     Dosage: 1/2 TAB MG BID PO
     Route: 048
     Dates: start: 20070926

REACTIONS (8)
  - BRADYCARDIA [None]
  - COLD SWEAT [None]
  - CYANOSIS [None]
  - DYSPNOEA EXERTIONAL [None]
  - FATIGUE [None]
  - GLARE [None]
  - HYPERHIDROSIS [None]
  - VISION BLURRED [None]
